FAERS Safety Report 20465470 (Version 2)
Quarter: 2022Q1

REPORT INFORMATION
  Report Type: Report from Study
  Country: US (occurrence: US)
  Receive Date: 20220212
  Receipt Date: 20220325
  Transmission Date: 20220423
  Serious: No
  Sender: FDA-Public Use
  Company Number: US-NOVARTISTESTPH-NVSC2022US030740

PATIENT
  Age: 64 Year
  Sex: Male

DRUGS (2)
  1. ENTRESTO [Suspect]
     Active Substance: SACUBITRIL\VALSARTAN
     Indication: Product used for unknown indication
     Dosage: UNK
     Route: 065
  2. ENTRESTO [Suspect]
     Active Substance: SACUBITRIL\VALSARTAN
     Indication: Cardiac failure chronic

REACTIONS (8)
  - Hip deformity [Unknown]
  - Feeling abnormal [Unknown]
  - Depression [Unknown]
  - Decreased activity [Unknown]
  - Overweight [Unknown]
  - Sleep apnoea syndrome [Unknown]
  - Dizziness postural [Unknown]
  - Fatigue [Unknown]
